FAERS Safety Report 5908286-9 (Version None)
Quarter: 2008Q4

REPORT INFORMATION
  Report Type: 
  Country: None (occurrence: None)
  Receive Date: 20081006
  Receipt Date: 20080923
  Transmission Date: 20090506
  Serious: Yes (Other)
  Sender: FDA-Public Use
  Company Number: US-BAYER-200834326NA

PATIENT

DRUGS (2)
  1. BETASERON [Suspect]
     Indication: DRUG USE FOR UNKNOWN INDICATION
     Route: 058
  2. BETASERON [Suspect]
     Route: 058
     Dates: start: 20080301

REACTIONS (4)
  - CHEST PAIN [None]
  - COLON CANCER [None]
  - COUGH [None]
  - PYREXIA [None]
